FAERS Safety Report 7439708-2 (Version None)
Quarter: 2011Q2

REPORT INFORMATION
  Report Type: 
  Country: None (occurrence: None)
  Receive Date: 20110427
  Receipt Date: 20110414
  Transmission Date: 20111010
  Serious: Yes (Other)
  Sender: FDA-Public Use
  Company Number: PHFR2011GB02583

PATIENT
  Sex: Female

DRUGS (3)
  1. CLOZARIL [Suspect]
     Dosage: 375 MG, UNK
     Route: 048
     Dates: start: 20110419
  2. CLOZARIL [Suspect]
     Indication: SCHIZOPHRENIA
     Dosage: UNK MG, UNK
     Route: 048
     Dates: start: 20010701
  3. CLOZARIL [Suspect]
     Dosage: 400 MG, UNK
     Route: 048

REACTIONS (3)
  - ANTIPSYCHOTIC DRUG LEVEL ABOVE THERAPEUTIC [None]
  - MYOCLONUS [None]
  - FALL [None]
